FAERS Safety Report 7435391-0 (Version None)
Quarter: 2011Q2

REPORT INFORMATION
  Report Type: 
  Country: None (occurrence: None)
  Receive Date: 20110425
  Receipt Date: 20090930
  Transmission Date: 20111010
  Serious: Yes (Other)
  Sender: FDA-Public Use
  Company Number: US-BAYER-200934364NA

PATIENT
  Age: 73 Year
  Sex: Female

DRUGS (11)
  1. VANCOMYCIN [Concomitant]
     Dosage: 1 G, UNK
     Route: 042
     Dates: start: 20040524, end: 20040524
  2. HEPARIN [Concomitant]
     Dosage: 30000 U, UNK
     Route: 042
     Dates: start: 20040524, end: 20040524
  3. RED BLOOD CELLS [Concomitant]
     Dosage: 8 U, UNK
     Dates: start: 20040524
  4. FRESH FROZEN PLASMA [Concomitant]
     Dosage: 4 U, UNK
     Dates: start: 20040524
  5. VERSED [Concomitant]
     Dosage: 2 MG, UNK
     Route: 042
     Dates: start: 20040524, end: 20040524
  6. ESMOLOL [Concomitant]
     Dosage: 150 MG, UNK
     Route: 042
     Dates: start: 20040524, end: 20040524
  7. INSULIN [INSULIN HUMAN] [Concomitant]
     Dosage: 10 U, UNK
     Route: 042
     Dates: start: 20040524, end: 20040524
  8. TRASYLOL [Suspect]
     Indication: CORONARY ARTERY BYPASS
     Dosage: 200 CC THEN 50 CC PER HOUR
     Route: 042
     Dates: start: 20040524, end: 20040524
  9. ANCEF [Concomitant]
     Dosage: 1 G, UNK
     Route: 042
     Dates: start: 20040524, end: 20040524
  10. PLATELETS [Concomitant]
     Dosage: 20 U, UNK
     Dates: start: 20040524
  11. LASIX [Concomitant]
     Dosage: 40 MG, UNK
     Route: 042
     Dates: start: 20040524, end: 20040524

REACTIONS (13)
  - RENAL FAILURE [None]
  - FEAR [None]
  - UNEVALUABLE EVENT [None]
  - RENAL INJURY [None]
  - DEPRESSION [None]
  - NERVOUSNESS [None]
  - MULTI-ORGAN FAILURE [None]
  - EMOTIONAL DISTRESS [None]
  - INJURY [None]
  - PAIN [None]
  - FEAR OF DEATH [None]
  - ANXIETY [None]
  - ANHEDONIA [None]
